FAERS Safety Report 23081752 (Version 2)
Quarter: 2023Q4

REPORT INFORMATION
  Report Type: Report from Study
  Country: CA (occurrence: CA)
  Receive Date: 20231019
  Receipt Date: 20231228
  Transmission Date: 20240110
  Serious: Yes (Other)
  Sender: FDA-Public Use
  Company Number: CA-JNJFOC-20230207307

PATIENT
  Age: 37 Year
  Sex: Male
  Weight: 74 kg

DRUGS (4)
  1. REMICADE [Suspect]
     Active Substance: INFLIXIMAB
     Indication: Colitis ulcerative
     Dosage: EXPIRATION DATE: 31-AUG-2025?ON 31-MAR-2023, THE PATIENT RECEIVED 93TH REMICADE INFUSION OF DOSE 700
     Route: 041
     Dates: start: 20150901
  2. REMICADE [Suspect]
     Active Substance: INFLIXIMAB
     Dosage: ON 01-SEP-2023, PATIENT RECEIVED 96TH INFLIXIMAB, RECOMBINANT INFUSION OF 700 MG AND PARTIAL MAYO WA
     Route: 041
     Dates: start: 2023
  3. REMICADE [Suspect]
     Active Substance: INFLIXIMAB
     Route: 041
  4. REMICADE [Suspect]
     Active Substance: INFLIXIMAB
     Dosage: 98TH INFUSION
     Route: 041
     Dates: start: 20231220

REACTIONS (6)
  - Colitis ulcerative [Recovering/Resolving]
  - COVID-19 [Unknown]
  - Malaise [Unknown]
  - Therapeutic product effect incomplete [Unknown]
  - Off label use [Unknown]
  - Inappropriate schedule of product administration [Unknown]

NARRATIVE: CASE EVENT DATE: 20230101
